FAERS Safety Report 9046539 (Version 1)
Quarter: 2013Q1

REPORT INFORMATION
  Report Type: Spontaneous
  Country: CN (occurrence: CN)
  Receive Date: 20130203
  Receipt Date: 20130203
  Transmission Date: 20140127
  Serious: Yes (Other)
  Sender: FDA-Public Use
  Company Number: CN-009507513-1301CHN012951

PATIENT
  Age: 40 Month
  Sex: Female

DRUGS (1)
  1. INVANZ [Suspect]
     Indication: PNEUMONIA
     Dosage: 1 G, QD
     Dates: start: 201203, end: 201203

REACTIONS (7)
  - Loss of consciousness [Recovered/Resolved]
  - Gaze palsy [Recovered/Resolved]
  - Muscular weakness [Recovered/Resolved]
  - Loss of consciousness [Recovered/Resolved]
  - Gaze palsy [Recovered/Resolved]
  - Muscular weakness [Recovered/Resolved]
  - Inappropriate schedule of drug administration [Unknown]
